FAERS Safety Report 19449806 (Version 2)
Quarter: 2021Q3

REPORT INFORMATION
  Report Type: Spontaneous
  Country: US (occurrence: US)
  Receive Date: 20210622
  Receipt Date: 20210730
  Transmission Date: 20211014
  Serious: No
  Sender: FDA-Public Use
  Company Number: US-BAYER-2021-161285

PATIENT
  Age: 53 Year
  Sex: Female

DRUGS (1)
  1. CLIMARA [Suspect]
     Active Substance: ESTRADIOL
     Indication: HORMONE REPLACEMENT THERAPY
     Dosage: 0.0375MG
     Route: 062
     Dates: start: 20210607

REACTIONS (4)
  - Application site irritation [None]
  - Device adhesion issue [None]
  - Wrong technique in product usage process [None]
  - Product administration interrupted [None]

NARRATIVE: CASE EVENT DATE: 20210607
